FAERS Safety Report 7287724-6 (Version None)
Quarter: 2011Q1

REPORT INFORMATION
  Report Type: 
  Country: None (occurrence: None)
  Receive Date: 20110208
  Receipt Date: 20110208
  Transmission Date: 20110831
  Serious: Yes (Other)
  Sender: FDA-Public Use
  Company Number: None

PATIENT
  Age: 39 Year
  Sex: Female
  Weight: 75.7507 kg

DRUGS (6)
  1. VYVANSE [Concomitant]
  2. FLUCONAZOLE [Concomitant]
  3. TEMAZEPAM [Concomitant]
  4. CEFUROXIME [Concomitant]
  5. BUPROPION HCL [Concomitant]
  6. LAMOTRIGINE [Suspect]
     Indication: DEPRESSION
     Dosage: 200MG DAILY PO
     Route: 048
     Dates: start: 20101207, end: 20110203

REACTIONS (2)
  - CONTUSION [None]
  - PAIN [None]
